FAERS Safety Report 8402094-5 (Version None)
Quarter: 2012Q2

REPORT INFORMATION
  Report Type: 
  Country: None (occurrence: None)
  Receive Date: 20120601
  Receipt Date: 20120530
  Transmission Date: 20120825
  Serious: Yes (Life-Threatening, Hospitalization)
  Sender: FDA-Public Use
  Company Number: GXKR2012DE001871

PATIENT

DRUGS (8)
  1. EFFIENT [Interacting]
     Indication: STENT PLACEMENT
     Dosage: 1 DF, UNK
     Route: 048
     Dates: start: 20111021, end: 20111101
  2. EPLERENONE [Concomitant]
     Indication: CARDIAC FAILURE
     Dosage: 1 DF, UNK
     Dates: start: 20111021
  3. ENALAPRIL MALEATE [Concomitant]
     Indication: CORONARY ARTERY DISEASE
     Dosage: 5 MG, UNK
     Dates: start: 20050801
  4. ACETYLSALICYLIC ACID SRT [Suspect]
     Indication: CORONARY ARTERY DISEASE
     Dosage: 100 MG, UNK
     Route: 048
     Dates: start: 20050801
  5. SIMVASTATIN [Concomitant]
     Indication: CORONARY ARTERY DISEASE
     Dosage: 20 MG, UNK
     Dates: start: 20050801
  6. CLOPIDOGREL [Interacting]
     Route: 048
     Dates: start: 20111101
  7. BISOPROLOL FUMARATE [Concomitant]
     Indication: CORONARY ARTERY DISEASE
     Dosage: 5 MG, UNK
     Dates: start: 20050801
  8. METFORMIN HCL [Concomitant]
     Indication: DIABETES MELLITUS
     Dosage: 1000 MG, UNK
     Dates: start: 20040601

REACTIONS (5)
  - HYPOTENSION [None]
  - DRUG INTERACTION [None]
  - HAEMOGLOBIN [None]
  - HAEMORRHAGE [None]
  - HAEMOGLOBIN DECREASED [None]
